FAERS Safety Report 8912336 (Version 1)
Quarter: 2012Q4

REPORT INFORMATION
  Report Type: Spontaneous
  Country: US (occurrence: None)
  Receive Date: 20121113
  Receipt Date: 20121113
  Transmission Date: 20130627
  Serious: Yes (Hospitalization)
  Sender: FDA-Public Use
  Company Number: 2012AP003821

PATIENT
  Age: 60 Year
  Sex: Male

DRUGS (2)
  1. DILT-XR [Suspect]
     Indication: DRUG OVERDOSE DELIBERATE SELF-INFLICTED
  2. NIFEDIPINE [Concomitant]

REACTIONS (7)
  - Hypotension [None]
  - Atrioventricular block first degree [None]
  - Electrocardiogram QT prolonged [None]
  - Bradycardia [None]
  - Suicide attempt [None]
  - Intentional overdose [None]
  - Blood glucose increased [None]
